FAERS Safety Report 18070598 (Version 1)
Quarter: 2020Q3

REPORT INFORMATION
  Report Type: Spontaneous
  Country: US (occurrence: US)
  Receive Date: 20200727
  Receipt Date: 20200727
  Transmission Date: 20201103
  Serious: No
  Sender: FDA-Public Use
  Company Number: US-AUROBINDO-AUR-APL-2019-035016

PATIENT
  Age: 74 Year
  Sex: Female

DRUGS (2)
  1. AMIODARONE HYDROCHLORIDE 200 MG TABLET [Suspect]
     Active Substance: AMIODARONE HYDROCHLORIDE
     Indication: VENTRICULAR TACHYCARDIA
     Dosage: 200 MILLIGRAM, DAILY
     Route: 065
     Dates: start: 201901
  2. PRAVASTATIN. [Concomitant]
     Active Substance: PRAVASTATIN
     Indication: PRODUCT USED FOR UNKNOWN INDICATION
     Dosage: UNK, TAKEN FOR 5 OR 6 YEARS
     Route: 065

REACTIONS (5)
  - Myalgia [Unknown]
  - Loss of personal independence in daily activities [Unknown]
  - Blood creatinine increased [Unknown]
  - Arthritis [Unknown]
  - Neck pain [Not Recovered/Not Resolved]

NARRATIVE: CASE EVENT DATE: 201901
